FAERS Safety Report 22518285 (Version 1)
Quarter: 2023Q2

REPORT INFORMATION
  Report Type: Other
  Country: FR (occurrence: FR)
  Receive Date: 20230605
  Receipt Date: 20230605
  Transmission Date: 20230721
  Serious: Yes (Congenital Anomaly, Other)
  Sender: FDA-Public Use
  Company Number: FR-MACLEODS PHARMACEUTICALS US LTD-MAC2023041634

PATIENT

DRUGS (2)
  1. LAMIVUDINE\ZIDOVUDINE [Suspect]
     Active Substance: LAMIVUDINE\ZIDOVUDINE
     Indication: Product used for unknown indication
     Dosage: UNK(1 COURSE,UNKNOWN TRIMESTER))
     Route: 064
  2. ABACAVIR [Suspect]
     Active Substance: ABACAVIR
     Indication: Product used for unknown indication
     Dosage: UNK(1 COURSE, UNKNOWN TRIMESTER)
     Route: 064

REACTIONS (2)
  - Cell-mediated immune deficiency [Unknown]
  - Foetal exposure during pregnancy [Unknown]
